FAERS Safety Report 4289000-2 (Version None)
Quarter: 2004Q1

REPORT INFORMATION
  Report Type: 
  Country: None (occurrence: None)
  Receive Date: 20040203
  Receipt Date: 20030204
  Transmission Date: 20041129
  Serious: Yes (Life-Threatening)
  Sender: FDA-Public Use
  Company Number: 03P-163-0211346-00

PATIENT
  Age: 37 Year
  Sex: Male

DRUGS (2)
  1. DILAUDID [Suspect]
     Indication: POSTOPERATIVE ANALGESIA
     Dosage: 1 MILLIGRAM/MILLILITERS, 1 IN 1 D, INTRAVENOUS
     Route: 042
     Dates: start: 20030204
  2. MORPHINE SULFATE [Concomitant]

REACTIONS (3)
  - OVERDOSE [None]
  - RESPIRATORY RATE DECREASED [None]
  - SOMNOLENCE [None]
